FAERS Safety Report 6915759-9 (Version None)
Quarter: 2010Q3

REPORT INFORMATION
  Report Type: 
  Country: None (occurrence: None)
  Receive Date: 20100810
  Receipt Date: 20100217
  Transmission Date: 20110219
  Serious: Yes (Disabling)
  Sender: FDA-Public Use
  Company Number: A0834131A

PATIENT
  Age: 40 Year
  Sex: Female
  Weight: 72.7 kg

DRUGS (3)
  1. PAROXETINE HCL [Suspect]
     Indication: PANIC DISORDER
     Dosage: 13MG PER DAY
     Route: 048
     Dates: start: 20010901
  2. PROZAC [Suspect]
     Indication: PANIC DISORDER
     Dosage: 10MG AS REQUIRED
     Route: 048
     Dates: start: 20090901, end: 20091201
  3. CLONAZEPAM [Concomitant]
     Indication: PANIC ATTACK
     Dosage: .25MG PER DAY
     Route: 048
     Dates: start: 20090901

REACTIONS (5)
  - ANXIETY [None]
  - ILL-DEFINED DISORDER [None]
  - PANIC ATTACK [None]
  - RESTLESSNESS [None]
  - WEIGHT INCREASED [None]
